FAERS Safety Report 13699083 (Version 2)
Quarter: 2017Q3

REPORT INFORMATION
  Report Type: Spontaneous
  Country: US (occurrence: US)
  Receive Date: 20170628
  Receipt Date: 20170706
  Transmission Date: 20171127
  Serious: No
  Sender: FDA-Public Use
  Company Number: US-BAYER-2017-119882

PATIENT

DRUGS (2)
  1. NEXAVAR [Suspect]
     Active Substance: SORAFENIB
     Dosage: DECREASED DOSE
  2. NEXAVAR [Suspect]
     Active Substance: SORAFENIB
     Dosage: UNK

REACTIONS (7)
  - Pruritus [None]
  - Rash [None]
  - Pain of skin [None]
  - Feeling hot [None]
  - Skin lesion [None]
  - Skin irritation [None]
  - Skin exfoliation [None]
